FAERS Safety Report 6630803-4 (Version None)
Quarter: 2010Q1

REPORT INFORMATION
  Report Type: 
  Country: None (occurrence: None)
  Receive Date: 20100311
  Receipt Date: 20100303
  Transmission Date: 20100710
  Serious: Yes (Hospitalization)
  Sender: FDA-Public Use
  Company Number: PHHO2009GB15859

PATIENT
  Sex: Female
  Weight: 86 kg

DRUGS (1)
  1. STI571/CGP57148B T35717+CAPS [Suspect]
     Indication: CHRONIC MYELOID LEUKAEMIA
     Dosage: 400 MG, QD
     Route: 048
     Dates: start: 20080221, end: 20091215

REACTIONS (4)
  - DYSPNOEA [None]
  - LUPUS-LIKE SYNDROME [None]
  - PNEUMONITIS [None]
  - RALES [None]
